FAERS Safety Report 7422639-1 (Version None)
Quarter: 2011Q2

REPORT INFORMATION
  Report Type: 
  Country: None (occurrence: None)
  Receive Date: 20110414
  Receipt Date: 20110414
  Transmission Date: 20111010
  Serious: Yes (Hospitalization)
  Sender: FDA-Public Use
  Company Number: None

PATIENT
  Age: 83 Year
  Sex: Male
  Weight: 103.6 kg

DRUGS (1)
  1. INSULIN [Suspect]
     Indication: DIABETES MELLITUS
     Dosage: 25ML AM SQ
     Route: 058
     Dates: start: 20100207

REACTIONS (11)
  - VOMITING [None]
  - MALAISE [None]
  - DIABETES MELLITUS INADEQUATE CONTROL [None]
  - ASTHENIA [None]
  - NAUSEA [None]
  - URINE OUTPUT DECREASED [None]
  - DYSPNOEA [None]
  - FAECES DISCOLOURED [None]
  - DYSURIA [None]
  - HYPERGLYCAEMIA [None]
  - DIARRHOEA [None]
